FAERS Safety Report 25150109 (Version 1)
Quarter: 2025Q2

REPORT INFORMATION
  Report Type: Spontaneous
  Country: US (occurrence: US)
  Receive Date: 20250402
  Receipt Date: 20250402
  Transmission Date: 20250716
  Serious: Yes (Other)
  Sender: BAYER
  Company Number: US-BAYER-2025A043273

PATIENT
  Age: 62 Year
  Sex: Female
  Weight: 72 kg

DRUGS (3)
  1. ASPIRIN [Suspect]
     Active Substance: ASPIRIN
     Indication: Ischaemic stroke
  2. APIXABAN [Suspect]
     Active Substance: APIXABAN
     Dosage: 2.5 MG, BID
  3. WARFARIN [Suspect]
     Active Substance: WARFARIN

REACTIONS (1)
  - Upper gastrointestinal haemorrhage [None]
